FAERS Safety Report 5999987-5 (Version None)
Quarter: 2008Q4

REPORT INFORMATION
  Report Type: 
  Country: None (occurrence: None)
  Receive Date: 20081211
  Receipt Date: 20081211
  Transmission Date: 20090506
  Serious: Yes (Life-Threatening, Hospitalization, Disabling)
  Sender: FDA-Public Use
  Company Number: None

PATIENT
  Sex: Female
  Weight: 70.3075 kg

DRUGS (1)
  1. ATIVAN [Suspect]
     Dosage: 1-2 MG 3-4 TIMES

REACTIONS (2)
  - MUSCLE DISORDER [None]
  - PRODUCT QUALITY ISSUE [None]
